FAERS Safety Report 21398962 (Version 1)
Quarter: 2022Q4

REPORT INFORMATION
  Report Type: Spontaneous
  Country: US (occurrence: US)
  Receive Date: 20221001
  Receipt Date: 20221001
  Transmission Date: 20230113
  Serious: No
  Sender: FDA-Public Use
  Company Number: US-drreddys-LIT/USA/22/0154683

PATIENT
  Age: 7 Year
  Sex: Male

DRUGS (4)
  1. BORTEZOMIB [Suspect]
     Active Substance: BORTEZOMIB
     Indication: Graft versus host disease in gastrointestinal tract
     Dosage: 0.5 MG/M2 TO 1.0 MG/M2
  2. BORTEZOMIB [Suspect]
     Active Substance: BORTEZOMIB
     Indication: Acute graft versus host disease in skin
  3. PREDNISONE [Concomitant]
     Active Substance: PREDNISONE
     Indication: Graft versus host disease in gastrointestinal tract
  4. PREDNISONE [Concomitant]
     Active Substance: PREDNISONE
     Indication: Acute graft versus host disease in skin

REACTIONS (1)
  - Off label use [Unknown]
